FAERS Safety Report 9913056 (Version 1)
Quarter: 2014Q1

REPORT INFORMATION
  Report Type: Spontaneous
  Country: AU (occurrence: AU)
  Receive Date: 20140220
  Receipt Date: 20140220
  Transmission Date: 20141002
  Serious: Yes (Other)
  Sender: FDA-Public Use
  Company Number: AU-JNJFOC-20140209906

PATIENT
  Age: 85 Year
  Sex: Female

DRUGS (4)
  1. XARELTO [Suspect]
     Indication: CEREBROVASCULAR ACCIDENT PROPHYLAXIS
     Route: 048
     Dates: start: 20131111
  2. XARELTO [Suspect]
     Indication: ATRIAL FIBRILLATION
     Route: 048
     Dates: start: 20131111
  3. COVERSYL [Concomitant]
     Route: 065
  4. OROXINE [Concomitant]
     Route: 065

REACTIONS (2)
  - Haemoglobin decreased [Unknown]
  - Serum ferritin decreased [Unknown]
